FAERS Safety Report 25163851 (Version 2)
Quarter: 2025Q2

REPORT INFORMATION
  Report Type: Spontaneous
  Country: US (occurrence: US)
  Receive Date: 20250405
  Receipt Date: 20250416
  Transmission Date: 20250716
  Serious: No
  Sender: ROCHE
  Company Number: US-ROCHE-10000242937

PATIENT
  Age: 49 Year
  Sex: Female

DRUGS (2)
  1. XOLAIR [Suspect]
     Active Substance: OMALIZUMAB
     Indication: Urticaria
     Dosage: DOSE IS 450MG EVERY 2 WEEKS IN THE FORM OF (1) 150MG AND (1) 300MG
     Route: 058
  2. XOLAIR [Suspect]
     Active Substance: OMALIZUMAB
     Dosage: DOSE IS 450MG EVERY 2 WEEKS IN THE FORM OF (1) 150MG AND (1) 300MG
     Route: 058

REACTIONS (7)
  - Exposure via skin contact [Unknown]
  - Off label use [Unknown]
  - Product preparation error [Unknown]
  - Device leakage [Unknown]
  - Device defective [Unknown]
  - Injection site bruising [Unknown]
  - Wrong technique in product usage process [Unknown]

NARRATIVE: CASE EVENT DATE: 20250323
